FAERS Safety Report 4314682-6 (Version None)
Quarter: 2004Q1

REPORT INFORMATION
  Report Type: 
  Country: None (occurrence: None)
  Receive Date: 20040308
  Receipt Date: 20031211
  Transmission Date: 20041129
  Serious: Yes (Life-Threatening, Other)
  Sender: FDA-Public Use
  Company Number: 805#1#2003-00047

PATIENT
  Age: 81 Year
  Sex: Female

DRUGS (6)
  1. ALPROSTADIL [Suspect]
     Indication: ATHEROSCLEROSIS OBLITERANS
     Dosage: 60 MCG (60MCG 1 IN 1 DAY (S)) INTRAVENOUS DRIP
     Route: 041
     Dates: start: 20031201, end: 20031202
  2. BENIDIPINE-HYDROCHLORIDE                     (BENIDIPINE HYDROCHLORIDE [Concomitant]
  3. VOGLIBOSE (VOGLIBOSE) [Concomitant]
  4. PROPIVERINE-HYDROCHLORIDE           (PROPIVERINE HYDROCHLORIDE) [Concomitant]
  5. ZOLPIDEM TARTRATE [Concomitant]
  6. PRAVASTATIN SODIUM [Concomitant]

REACTIONS (4)
  - ELECTROCARDIOGRAM ST SEGMENT DEPRESSION [None]
  - MYOCARDIAL INFARCTION [None]
  - PERICARDIAL EFFUSION [None]
  - VENTRICULAR HYPERTROPHY [None]
